FAERS Safety Report 15576519 (Version 1)
Quarter: 2018Q4

REPORT INFORMATION
  Report Type: Spontaneous
  Country: GB (occurrence: GB)
  Receive Date: 20181101
  Receipt Date: 20181101
  Transmission Date: 20190205
  Serious: Yes (Other)
  Sender: FDA-Public Use
  Company Number: GB-PFIZER INC-2018441183

PATIENT
  Age: 29 Year
  Sex: Female
  Weight: 56 kg

DRUGS (5)
  1. VENTOLIN [Concomitant]
     Active Substance: ALBUTEROL SULFATE
     Dosage: 2 DF, AS NEEDED
     Route: 055
     Dates: start: 20161104, end: 20180907
  2. SERTRALINE HCL [Suspect]
     Active Substance: SERTRALINE HYDROCHLORIDE
     Dosage: 50 MG, UNK
     Dates: start: 20181008
  3. CLENIL MODULITE [Concomitant]
     Active Substance: BECLOMETHASONE DIPROPIONATE
     Dosage: 4 DF, 1X/DAY
     Route: 055
     Dates: start: 20161104, end: 20180907
  4. QUETIAPINE. [Concomitant]
     Active Substance: QUETIAPINE
     Dosage: 4 DF, 1X/DAY
     Dates: start: 20170818, end: 20180907
  5. MIRTAZAPINE. [Concomitant]
     Active Substance: MIRTAZAPINE
     Dosage: 1 DF, 1X/DAY, (AT NIGHT.)
     Dates: start: 20170818, end: 20180907

REACTIONS (3)
  - Rash [Recovered/Resolved]
  - Pharyngeal oedema [Recovered/Resolved]
  - Headache [Recovered/Resolved]

NARRATIVE: CASE EVENT DATE: 20181008
